FAERS Safety Report 5691656-4 (Version None)
Quarter: 2008Q2

REPORT INFORMATION
  Report Type: 
  Country: None (occurrence: None)
  Receive Date: 20080402
  Receipt Date: 20060301
  Transmission Date: 20081010
  Serious: Yes (Death, Hospitalization)
  Sender: FDA-Public Use
  Company Number: US-ROCHE-438738

PATIENT
  Age: 58 Year
  Sex: Female
  Weight: 109.3 kg

DRUGS (2)
  1. CAPECITABINE [Suspect]
     Indication: BREAST CANCER
     Route: 048
  2. ZOMETA [Concomitant]

REACTIONS (2)
  - BREAST CANCER METASTATIC [None]
  - DEATH [None]
